FAERS Safety Report 6915873-8 (Version None)
Quarter: 2010Q3

REPORT INFORMATION
  Report Type: 
  Country: None (occurrence: None)
  Receive Date: 20100810
  Receipt Date: 20100721
  Transmission Date: 20110219
  Serious: Yes (Hospitalization, Other)
  Sender: FDA-Public Use
  Company Number: GB-BAYER-200821904GPV

PATIENT
  Age: 29 Year
  Sex: Female

DRUGS (7)
  1. CAMPATH [Suspect]
     Indication: MULTIPLE SCLEROSIS
     Route: 042
     Dates: start: 20050901
  2. CAMPATH [Suspect]
     Route: 042
     Dates: start: 20060901
  3. SM3 [Suspect]
     Indication: PROPHYLAXIS
     Dosage: CYCLE ONE DAY 1 OF CYCLE 1
     Route: 042
  4. SM3 [Suspect]
     Dosage: CYCLE ONE DAY 2 OF CYCLE 1
     Route: 042
  5. LEVOTHYROXINE [Concomitant]
     Indication: HYPOTHYROIDISM
     Route: 048
  6. TERBUTALINE SULFATE [Concomitant]
     Indication: ASTHMA
     Dosage: 250 MG / ACTUATION INHALER, 1 TO 2 PUFFS
     Route: 055
  7. METHYLPREDNISOLONE [Concomitant]
     Indication: CYTOKINE RELEASE SYNDROME

REACTIONS (2)
  - ADRENAL INSUFFICIENCY [None]
  - CASTLEMAN'S DISEASE [None]
